FAERS Safety Report 4463524-7 (Version None)
Quarter: 2004Q3

REPORT INFORMATION
  Report Type: 
  Country: None (occurrence: None)
  Receive Date: 20040928
  Receipt Date: 20040920
  Transmission Date: 20050211
  Serious: Yes (Hospitalization)
  Sender: FDA-Public Use
  Company Number: DEWYE049520SEP04

PATIENT
  Age: 29 Year
  Sex: Female

DRUGS (5)
  1. ETHINYL ESTRADIOL AND LEVONORGESTREL [Suspect]
     Dosage: 1 TABLET ORAL
     Route: 048
  2. INSIDON (OPIPRAMOL HYDROCHLORIDE, , 0) [Suspect]
     Dosage: 50 MG 2X PER 1 DAY ORAL
     Route: 048
  3. NEUROPLANT (HYPERICUM EXTRACT, , 0) [Suspect]
     Dosage: 4 TABLETS ORAL
     Route: 048
  4. THYROXINE I 125 (THYROXINE I 125, , 0) [Suspect]
     Dosage: ORAL
     Route: 048
  5. VITAMIN B COMPLEX CAP [Suspect]
     Dosage: ORAL
     Route: 048

REACTIONS (5)
  - ALANINE AMINOTRANSFERASE INCREASED [None]
  - ASPARTATE AMINOTRANSFERASE INCREASED [None]
  - BLOOD BILIRUBIN INCREASED [None]
  - BLOOD LACTATE DEHYDROGENASE INCREASED [None]
  - NAUSEA [None]
